FAERS Safety Report 4531008-3 (Version None)
Quarter: 2004Q4

REPORT INFORMATION
  Report Type: 
  Country: None (occurrence: None)
  Receive Date: 20041217
  Receipt Date: 20041130
  Transmission Date: 20050328
  Serious: Yes (Life-Threatening, Other)
  Sender: FDA-Public Use
  Company Number: JP-MERCK-0412USA00293

PATIENT
  Age: 54 Year
  Sex: Male

DRUGS (6)
  1. PRIMAXIN [Suspect]
     Indication: SEPSIS
     Route: 041
     Dates: start: 20041122, end: 20041123
  2. MEROPENEM [Suspect]
     Indication: SEPSIS
     Route: 042
     Dates: start: 20041123
  3. TEICOPLANIN [Concomitant]
     Indication: PNEUMONIA STAPHYLOCOCCAL
     Route: 041
     Dates: start: 20041122, end: 20041122
  4. FUROSEMIDE [Concomitant]
     Indication: POLYURIA
     Route: 042
     Dates: start: 20041122, end: 20041123
  5. CANRENOATE POTASSIUM [Concomitant]
     Indication: POLYURIA
     Route: 042
     Dates: start: 20041121, end: 20041123
  6. DOPAMINE HYDROCHLORIDE [Concomitant]
     Indication: POLYURIA
     Route: 041
     Dates: start: 20041123, end: 20041123

REACTIONS (11)
  - BACTERIAL INFECTION [None]
  - BLOOD CHLORIDE DECREASED [None]
  - BLOOD CREATININE INCREASED [None]
  - BLOOD PRESSURE INCREASED [None]
  - BLOOD UREA INCREASED [None]
  - CONVULSION [None]
  - DEPRESSED LEVEL OF CONSCIOUSNESS [None]
  - HAEMATOCRIT ABNORMAL [None]
  - HAEMOGLOBIN ABNORMAL [None]
  - URINE OUTPUT DECREASED [None]
  - VOMITING [None]
